FAERS Safety Report 10379018 (Version 1)
Quarter: 2014Q3

REPORT INFORMATION
  Report Type: Spontaneous
  Country: US (occurrence: None)
  Receive Date: 20140811
  Receipt Date: 20140811
  Transmission Date: 20150326
  Serious: Yes (Disabling)
  Sender: FDA-Public Use
  Company Number: None

PATIENT
  Age: 59 Year
  Sex: Female
  Weight: 70.31 kg

DRUGS (2)
  1. MONTELUKAST SOD [Suspect]
     Active Substance: MONTELUKAST SODIUM
     Indication: EAR INFECTION
     Dosage: 1 PILL
     Route: 048
     Dates: start: 20130911, end: 20130925
  2. MONTELUKAST SOD [Suspect]
     Active Substance: MONTELUKAST SODIUM
     Indication: SINUSITIS
     Dosage: 1 PILL
     Route: 048
     Dates: start: 20130911, end: 20130925

REACTIONS (4)
  - Gastrooesophageal reflux disease [None]
  - Joint swelling [None]
  - Local swelling [None]
  - Peripheral swelling [None]

NARRATIVE: CASE EVENT DATE: 20130925
